FAERS Safety Report 5938142-1 (Version None)
Quarter: 2008Q4

REPORT INFORMATION
  Report Type: 
  Country: None (occurrence: None)
  Receive Date: 20081031
  Receipt Date: 20081021
  Transmission Date: 20090506
  Serious: Yes (Other)
  Sender: FDA-Public Use
  Company Number: US-PFIZER INC-2008088656

PATIENT
  Sex: Female
  Weight: 45.4 kg

DRUGS (6)
  1. LYRICA [Suspect]
     Indication: LUMBAR RADICULOPATHY
     Dates: start: 20070201
  2. MOBIC [Concomitant]
  3. TYLENOL [Concomitant]
  4. ACETYLSALICYLIC ACID SRT [Concomitant]
  5. CARDIZEM [Concomitant]
  6. CLARITIN [Concomitant]

REACTIONS (2)
  - ANTINUCLEAR ANTIBODY POSITIVE [None]
  - CONNECTIVE TISSUE DISORDER [None]
